FAERS Safety Report 11887711 (Version 2)
Quarter: 2016Q3

REPORT INFORMATION
  Report Type: Spontaneous
  Country: US (occurrence: US)
  Receive Date: 20160105
  Receipt Date: 20160804
  Transmission Date: 20161109
  Serious: No
  Sender: FDA-Public Use
  Company Number: US-ASTRAZENECA-2016SE00219

PATIENT
  Age: 24839 Day
  Sex: Male
  Weight: 131.5 kg

DRUGS (2)
  1. TUDORZA PRESSAIR [Suspect]
     Active Substance: ACLIDINIUM BROMIDE
     Dosage: 1 INHALATION TWICE DAILY
     Route: 055
  2. BLOOD PRESSURE MEDICATION [Concomitant]
     Active Substance: UNSPECIFIED INGREDIENT

REACTIONS (3)
  - Back pain [Unknown]
  - Drug dose omission [Unknown]
  - Device defective [Unknown]

NARRATIVE: CASE EVENT DATE: 20151229
